FAERS Safety Report 22206186 (Version 1)
Quarter: 2023Q2

REPORT INFORMATION
  Report Type: Spontaneous
  Country: DE (occurrence: DE)
  Receive Date: 20230413
  Receipt Date: 20230413
  Transmission Date: 20230721
  Serious: Yes (Life-Threatening, Other)
  Sender: FDA-Public Use
  Company Number: None

PATIENT
  Age: 53 Year
  Sex: Female
  Weight: 58 kg

DRUGS (2)
  1. SULFAMETHOXAZOLE\TRIMETHOPRIM [Suspect]
     Active Substance: SULFAMETHOXAZOLE\TRIMETHOPRIM
     Indication: Urinary tract infection
     Dosage: 16^^ TABLETS TOTAL, COTRIM FORTE-RATIOPHARM 800 MG/160 MG TABLET,
     Route: 065
     Dates: start: 20230306, end: 20230323
  2. FOSFOMYCIN [Concomitant]
     Active Substance: FOSFOMYCIN
     Indication: Urinary tract infection
     Dosage: 1 DOSAGE FORMS DAILY; ONE-TIME GIFT IN THE EVENING
     Route: 065
     Dates: start: 20230306, end: 20230306

REACTIONS (5)
  - Blood urine present [Recovered/Resolved]
  - Immune thrombocytopenia [Recovered/Resolved]
  - Petechiae [Recovered/Resolved]
  - Epistaxis [Recovered/Resolved]
  - Haematochezia [Recovered/Resolved]

NARRATIVE: CASE EVENT DATE: 20230301
